FAERS Safety Report 14472801 (Version 1)
Quarter: 2018Q1

REPORT INFORMATION
  Report Type: Spontaneous
  Country: US (occurrence: US)
  Receive Date: 20180201
  Receipt Date: 20180201
  Transmission Date: 20180509
  Serious: No
  Sender: FDA-Public Use
  Company Number: US-KADMON PHARMACEUTICALS, LLC-KAD201710-001090

PATIENT
  Age: 60 Year
  Sex: Female

DRUGS (2)
  1. RIBASPHERE RIBAPAK [Suspect]
     Active Substance: RIBAVIRIN
     Indication: CHRONIC HEPATITIS C
     Route: 048
     Dates: start: 20120424, end: 20130401
  2. PEGINTERFERON ALFA-2A. [Suspect]
     Active Substance: PEGINTERFERON ALFA-2A
     Indication: CHRONIC HEPATITIS C
     Route: 058
     Dates: start: 20120424, end: 20130401

REACTIONS (18)
  - Negative thoughts [Unknown]
  - Disturbance in attention [Recovering/Resolving]
  - Confusional state [Recovering/Resolving]
  - Depression [Recovering/Resolving]
  - Alopecia [Unknown]
  - Irritability [Not Recovered/Not Resolved]
  - Dry mouth [Unknown]
  - Hypoaesthesia [Recovered/Resolved]
  - Fatigue [Unknown]
  - Irritability [Unknown]
  - Anger [Unknown]
  - Memory impairment [Unknown]
  - Anxiety [Recovering/Resolving]
  - Condition aggravated [Unknown]
  - Pruritus [Recovering/Resolving]
  - Tremor [Recovering/Resolving]
  - Rash pruritic [Unknown]
  - Decreased appetite [Unknown]
